FAERS Safety Report 10421016 (Version 2)
Quarter: 2014Q4

REPORT INFORMATION
  Report Type: Spontaneous
  Country: US (occurrence: None)
  Receive Date: 20140722
  Receipt Date: 20141121
  Transmission Date: 20150528
  Serious: Yes (Other)
  Sender: FDA-Public Use
  Company Number: 163-10004-14061033

PATIENT
  Age: 51 Year
  Sex: Female
  Weight: 58.97 kg

DRUGS (9)
  1. OTEZLA [Suspect]
     Active Substance: APREMILAST
     Indication: PSORIATIC ARTHROPATHY
     Dosage: 60 MG, 2 IN 1 D, PO
     Route: 048
     Dates: start: 20140521, end: 20140603
  2. RANITIDINE [Concomitant]
     Active Substance: RANITIDINE\RANITIDINE HYDROCHLORIDE
  3. BESYLATE (AMLODIPINE BESILATE) [Concomitant]
  4. ESTRADIO (ESTRADIOL) [Concomitant]
  5. NAPROXEN (NAPROXEN) [Concomitant]
     Active Substance: NAPROXEN
  6. LOSARTAN (LOSARTAN) [Concomitant]
     Active Substance: LOSARTAN
  7. FLEXERIL [Concomitant]
     Active Substance: CYCLOBENZAPRINE HYDROCHLORIDE
  8. LISINOOPRIL (LISINOPRIL) [Concomitant]
  9. NORVASC [Concomitant]
     Active Substance: AMLODIPINE BESYLATE

REACTIONS (4)
  - Weight decreased [None]
  - No adverse event [None]
  - Diarrhoea [None]
  - Drug dose omission [None]

NARRATIVE: CASE EVENT DATE: 20140521
